FAERS Safety Report 12204614 (Version 2)
Quarter: 2016Q2

REPORT INFORMATION
  Report Type: Spontaneous
  Country: US (occurrence: US)
  Receive Date: 20160323
  Receipt Date: 20160407
  Transmission Date: 20160815
  Serious: Yes (Hospitalization, Other)
  Sender: FDA-Public Use
  Company Number: ADR-2014-02367

PATIENT
  Age: 43 Year
  Sex: Female

DRUGS (35)
  1. GLIPIZIDE. [Suspect]
     Active Substance: GLIPIZIDE
     Dosage: HALF TABLET WITH BREAKFAST AND SUPPER DAILY
     Route: 048
     Dates: start: 20160323
  2. LINAGLIPTIN [Suspect]
     Active Substance: LINAGLIPTIN
     Dosage: 1 TAB DAILY
     Route: 048
     Dates: start: 20160307
  3. METFORMIN [Suspect]
     Active Substance: METFORMIN HYDROCHLORIDE
     Dosage: 1000MG 2 TIMES DAILY
     Route: 048
  4. PREGABALIN. [Suspect]
     Active Substance: PREGABALIN
     Dosage: 300MG DAILY
     Route: 048
  5. ERGOCALCIFEROL. [Suspect]
     Active Substance: ERGOCALCIFEROL
     Dosage: 1 CAPSULE EVERY 14 DAYS
     Route: 048
     Dates: start: 20151214
  6. CROMOLYN [Suspect]
     Active Substance: CROMOLYN
     Dosage: 1 SPRAY 4 TIMES DAILY
     Route: 045
     Dates: start: 20160210
  7. WARFARIN [Suspect]
     Active Substance: WARFARIN
     Dosage: TUESDAY, THURSDAY, SATURDAY, SUNDAY
     Route: 048
  8. LEVOTHYROXINE SODIUM. [Suspect]
     Active Substance: LEVOTHYROXINE SODIUM
     Dosage: DAILY
     Route: 048
  9. RIFAMPIN. [Suspect]
     Active Substance: RIFAMPIN
     Indication: SOFT TISSUE INFECTION
     Dosage: 1 CAP EVERY 12 HOURS
     Route: 048
     Dates: start: 20160107
  10. IPRATROPIUM [Suspect]
     Active Substance: IPRATROPIUM
     Dosage: 2 SPRAYS 2-3 TIMES A DAY
     Route: 045
  11. LORAZEPAM. [Suspect]
     Active Substance: LORAZEPAM
     Dosage: 0.5MG NIGHTLY
     Route: 048
  12. DICLOXACILLIN SODIUM. [Suspect]
     Active Substance: DICLOXACILLIN SODIUM
     Dosage: 500MG 4 TIMES DAILY
     Route: 048
     Dates: start: 20160203
  13. HYDROMORPHONE [Suspect]
     Active Substance: HYDROMORPHONE
     Dosage: 1-2 TABS EVERY 4 HOURS AS NEEDED
     Route: 048
     Dates: start: 20151228
  14. FLUTICASONE [Suspect]
     Active Substance: FLUTICASONE\FLUTICASONE PROPIONATE
     Dosage: 1 SPRAY IN EACH NARE DAILY
     Route: 045
  15. MODAFINIL. [Suspect]
     Active Substance: MODAFINIL
     Dosage: 200MG 2 TIMES DAILY
     Route: 048
  16. REBIF REBIDOSE [Suspect]
     Active Substance: INTERFERON BETA-1A
     Dosage: 44MCG 3 TIMES/WEEK
     Route: 058
     Dates: start: 20160323
  17. DESVENLAFAXINE SUCCINATE [Suspect]
     Active Substance: DESVENLAFAXINE SUCCINATE
     Dosage: 100MG DAILY
     Route: 048
  18. MONTELUKAST [Suspect]
     Active Substance: MONTELUKAST SODIUM
     Dosage: 10MG DAILY
     Route: 048
  19. SIMVASTATIN. [Suspect]
     Active Substance: SIMVASTATIN
     Dosage: 20MG EVERY EVENING
     Route: 048
  20. WARFARIN [Suspect]
     Active Substance: WARFARIN
     Dosage: MONDAY, WEDNESDAY, FRIDAY
     Route: 048
  21. WARFARIN [Suspect]
     Active Substance: WARFARIN
     Dosage: TUESDAY, THURSDAY, SATURDAY, SUNDAY
     Route: 048
  22. AMPHETAMINE-DEXTROAMPHETAMINE [Suspect]
     Active Substance: AMPHETAMINE SULFATE\DEXTROAMPHETAMINE
     Dosage: 25MG DAILY
     Route: 048
  23. BACLOFEN. [Suspect]
     Active Substance: BACLOFEN
     Indication: MUSCLE SPASTICITY
     Dosage: 235MCG/DAY
     Route: 037
  24. CELEBREX [Suspect]
     Active Substance: CELECOXIB
     Dosage: 200MG 2 TIMES DAILY
     Route: 048
     Dates: start: 20140925
  25. WARFARIN [Suspect]
     Active Substance: WARFARIN
     Dosage: TUESDAY, THURSDAY, SATURDAY, SUNDAY
     Route: 048
  26. ACETAMINOPHEN\HYDROCODONE BITARTRATE [Suspect]
     Active Substance: ACETAMINOPHEN\HYDROCODONE BITARTRATE
     Indication: PAIN
     Dosage: 1 TAB EVERY 6 HOURS AS NEEDED
     Route: 048
  27. BACLOFEN. [Suspect]
     Active Substance: BACLOFEN
     Dosage: 10MG 3 TIMES A DAY AS NEEDED
     Route: 048
  28. TOLTERODINE [Suspect]
     Active Substance: TOLTERODINE
     Dosage: 2MG 2 TIMES DAILY
     Route: 048
  29. LEVOCETIRIZINE DIHYDROCHLORIDE. [Suspect]
     Active Substance: LEVOCETIRIZINE DIHYDROCHLORIDE
     Dosage: 5MG EVERY MORNING
     Route: 048
  30. NEBIVOLOL HCL [Suspect]
     Active Substance: NEBIVOLOL
     Dosage: 20MG DAILY
     Route: 048
  31. DALFAMPRIDINE [Suspect]
     Active Substance: DALFAMPRIDINE
     Dosage: 10MG 2 TIMES DAILY
     Route: 048
     Dates: start: 20150916
  32. CYCLOBENZAPRINE HCL [Suspect]
     Active Substance: CYCLOBENZAPRINE HYDROCHLORIDE
     Dosage: 20MG 4 TIMES A DAY AS NEEDED
     Route: 048
  33. CARBAMAZEPINE. [Suspect]
     Active Substance: CARBAMAZEPINE
     Dosage: 1 CAP 2 TIMES DAILY
     Route: 048
     Dates: start: 20151201
  34. CLONIDINE. [Suspect]
     Active Substance: CLONIDINE
     Dosage: 0.1MG DAILY
     Route: 048
  35. LURASIDONE [Suspect]
     Active Substance: LURASIDONE
     Dosage: 40MG DAILY
     Route: 048

REACTIONS (6)
  - Wound dehiscence [Unknown]
  - Medical device site erosion [Unknown]
  - Staphylococcal infection [Unknown]
  - Medical device site discharge [Unknown]
  - Excessive granulation tissue [Unknown]
  - Medical device site infection [Unknown]

NARRATIVE: CASE EVENT DATE: 201412
